FAERS Safety Report 18510659 (Version 1)
Quarter: 2020Q4

REPORT INFORMATION
  Report Type: Spontaneous
  Country: US (occurrence: US)
  Receive Date: 20201116
  Receipt Date: 20201116
  Transmission Date: 20210114
  Serious: Yes (Hospitalization)
  Sender: FDA-Public Use
  Company Number: None

PATIENT
  Age: 64 Year
  Sex: Female

DRUGS (11)
  1. HUMIRA [Suspect]
     Active Substance: ADALIMUMAB
     Indication: CROHN^S DISEASE
     Dosage: 1 PEN Q2WK SQ
     Route: 058
     Dates: start: 20200812
  2. DIAZEPAM. [Concomitant]
     Active Substance: DIAZEPAM
  3. OXYCODONE [Concomitant]
     Active Substance: OXYCODONE
  4. TIZANIDINE. [Concomitant]
     Active Substance: TIZANIDINE
  5. DICYCLOMINE [Concomitant]
     Active Substance: DICYCLOMINE HYDROCHLORIDE
  6. FENTANYL. [Concomitant]
     Active Substance: FENTANYL
  7. PROMETHAZINE [Concomitant]
     Active Substance: PROMETHAZINE HYDROCHLORIDE
  8. ZOLPIDEM [Concomitant]
     Active Substance: ZOLPIDEM TARTRATE
  9. CYCLOBENZAPR [Concomitant]
     Active Substance: CYCLOBENZAPRINE
  10. LANSOPRAZOLE. [Concomitant]
     Active Substance: LANSOPRAZOLE
  11. MESALAMINE. [Concomitant]
     Active Substance: MESALAMINE

REACTIONS (3)
  - Spinal operation [None]
  - Spinal rod insertion [None]
  - Therapy interrupted [None]

NARRATIVE: CASE EVENT DATE: 20201105
